FAERS Safety Report 24924747 (Version 1)
Quarter: 2025Q1

REPORT INFORMATION
  Report Type: Report from Study
  Country: US (occurrence: US)
  Receive Date: 20250204
  Receipt Date: 20250204
  Transmission Date: 20250409
  Serious: No
  Sender: EXELIXIS
  Company Number: US-EXELIXIS-CABO-24075708

PATIENT
  Age: 64 Year
  Sex: Male

DRUGS (3)
  1. CABOMETYX [Suspect]
     Active Substance: CABOZANTINIB S-MALATE
     Indication: Hepatocellular carcinoma
     Dosage: 60 MG, QD
     Route: 048
  2. CABOMETYX [Suspect]
     Active Substance: CABOZANTINIB S-MALATE
     Indication: Neoplasm malignant
     Route: 048
  3. CABOMETYX [Suspect]
     Active Substance: CABOZANTINIB S-MALATE
     Dosage: 20 MG, QD
     Route: 048

REACTIONS (18)
  - Abdominal discomfort [Unknown]
  - Blood pressure systolic increased [Unknown]
  - Acne [Unknown]
  - Diarrhoea [Recovering/Resolving]
  - Rash [Unknown]
  - Decreased appetite [Unknown]
  - Fatigue [Unknown]
  - Headache [Unknown]
  - Dry skin [Recovering/Resolving]
  - Dyspepsia [Unknown]
  - Dizziness [Unknown]
  - Pharyngeal erythema [Unknown]
  - Body temperature increased [Unknown]
  - Retching [Unknown]
  - Oropharyngeal pain [Unknown]
  - Hyperactive pharyngeal reflex [Unknown]
  - Skin ulcer [Unknown]
  - Cough [Unknown]

NARRATIVE: CASE EVENT DATE: 20240418
